FAERS Safety Report 7892680-3 (Version None)
Quarter: 2011Q4

REPORT INFORMATION
  Report Type: 
  Country: None (occurrence: None)
  Receive Date: 20111102
  Receipt Date: 20111017
  Transmission Date: 20120403
  Serious: Yes (Hospitalization, Other)
  Sender: FDA-Public Use
  Company Number: 1000024983

PATIENT
  Age: 52 Year
  Sex: Female

DRUGS (20)
  1. DIAZEPAM [Suspect]
     Dosage: 5 MG, AS REQUIRED
  2. CITALOPRAM HYDROBROMIDE [Suspect]
     Dosage: TITRATED UP TO 60 MG (60 MG, 1 N 1 D)
  3. ATORVASTATIN [Suspect]
     Indication: BLOOD CHOLESTEROL INCREASED
     Dosage: AS REQUIRED
  4. PRAVASTATIN [Suspect]
     Dosage: 40 MG
  5. PAROXETINE HCL [Suspect]
     Indication: STRESS
     Dosage: INCREASED TO 60 MG (60 MG, 1 IN 1 D)
  6. IRBESARTAN [Suspect]
     Indication: HYPERTENSION
     Dosage: 300 MG (300 MG, 1 IN 1 D)
  7. OROXINE (LEVOTHYROXINE SODIUM) [Suspect]
     Dosage: 100 MG (100 MG,  1 IN 1 D)
  8. FLU VACCINE (INFLUENZA VACCINE) [Suspect]
  9. VENLAFAXINE [Suspect]
     Dosage: 300 MG (300 MG, 1 IN 1 D)
  10. METOCLOPRAMIDE [Suspect]
     Dosage: AS REQUIRED
  11. FLUOXETINE HYDROCHLORIDE [Suspect]
  12. PENICILLIN (PENICILLIN) [Suspect]
  13. CEPHALEXIN [Suspect]
  14. ERYTHROMYCIN [Suspect]
  15. PREMARIN [Suspect]
     Indication: MENOPAUSE
     Dosage: 0.625 MG
  16. TRAMADOL HCL [Suspect]
     Indication: SOMATOFORM DISORDER
     Dosage: AS REQUIRED
  17. TENORMIN [Suspect]
     Dosage: 12.5 MG (12.5 MG, 1 IN 1 D)
  18. VALACYCLOVIR [Suspect]
     Indication: HERPES ZOSTER
  19. SERETIDE (SERETIDE) [Suspect]
  20. CELECOXIB [Suspect]
     Dosage: 200 MG, AS REQUIRED

REACTIONS (4)
  - SUICIDE ATTEMPT [None]
  - IMPAIRED WORK ABILITY [None]
  - AKATHISIA [None]
  - SUICIDAL BEHAVIOUR [None]
